FAERS Safety Report 10075875 (Version 2)
Quarter: 2014Q2

REPORT INFORMATION
  Report Type: Spontaneous
  Country: US (occurrence: US)
  Receive Date: 20140414
  Receipt Date: 20140414
  Transmission Date: 20141212
  Serious: Yes (Hospitalization, Other)
  Sender: FDA-Public Use
  Company Number: US-JNJFOC-20140209466

PATIENT
  Age: 82 Year
  Sex: Male
  Weight: 85.73 kg

DRUGS (12)
  1. XARELTO [Suspect]
     Indication: DEEP VEIN THROMBOSIS
     Route: 048
  2. XARELTO [Suspect]
     Indication: DEEP VEIN THROMBOSIS
     Dosage: ONE TIME A DAY
     Route: 048
     Dates: start: 20120717, end: 20140208
  3. XARELTO [Suspect]
     Indication: CEREBROVASCULAR ACCIDENT PROPHYLAXIS
     Dosage: ONE TIME A DAY
     Route: 048
     Dates: start: 20120717, end: 20140208
  4. XARELTO [Suspect]
     Indication: CEREBROVASCULAR ACCIDENT PROPHYLAXIS
     Route: 048
  5. XARELTO [Suspect]
     Indication: ATRIAL FIBRILLATION
     Dosage: ONE TIME A DAY
     Route: 048
     Dates: start: 20120717, end: 20140208
  6. XARELTO [Suspect]
     Indication: ATRIAL FIBRILLATION
     Route: 048
  7. LEVETIRACETAM [Concomitant]
     Dosage: 500 BID
     Route: 048
     Dates: start: 2008
  8. FLOMAX [Concomitant]
     Dosage: 0.4 DAILY
     Route: 048
     Dates: start: 2008
  9. AVODART [Concomitant]
     Dosage: 0.5 DAILY
     Route: 048
     Dates: start: 2008
  10. SERTRALINE [Concomitant]
     Dosage: 50 DAILY
     Route: 048
     Dates: start: 2008
  11. LASIX [Concomitant]
     Dosage: 40 DAILY
     Route: 048
     Dates: start: 2008
  12. ADVIL [Concomitant]
     Dosage: 250/50
     Route: 048
     Dates: start: 2008

REACTIONS (2)
  - Gastrointestinal haemorrhage [Recovered/Resolved]
  - Lethargy [Recovered/Resolved]
